FAERS Safety Report 7525715-8 (Version None)
Quarter: 2011Q2

REPORT INFORMATION
  Report Type: 
  Country: None (occurrence: None)
  Receive Date: 20110526
  Receipt Date: 20110516
  Transmission Date: 20111010
  Serious: Yes (Other)
  Sender: FDA-Public Use
  Company Number: DSU-2009-02913

PATIENT
  Age: 63 Year
  Sex: Female
  Weight: 70 kg

DRUGS (6)
  1. OLMESARTAN MEDOXOMIL [Suspect]
     Indication: HYPERTENSION
     Dosage: 20 MG, PER ORAL
     Route: 048
     Dates: start: 20090601, end: 20101101
  2. NORVASC [Suspect]
     Indication: HYPERTENSION
     Dosage: PER ORAL
     Route: 048
     Dates: start: 20090601
  3. LINSEED (LINUM USITATISSIMUM SEED) [Concomitant]
  4. RIVOTRIL (CLONAZEPAM) [Concomitant]
  5. ALPRAZOLAM [Concomitant]
  6. PRISTIQ [Suspect]
     Indication: DEPRESSION
     Dosage: 20 MG, PER ORAL
     Route: 048
     Dates: start: 20110101, end: 20110301

REACTIONS (8)
  - DEPRESSION [None]
  - MALAISE [None]
  - COLD SWEAT [None]
  - ALOPECIA [None]
  - ERYTHEMA [None]
  - INSOMNIA [None]
  - FEELING COLD [None]
  - HYPOPHAGIA [None]
